FAERS Safety Report 8380794-3 (Version None)
Quarter: 2012Q2

REPORT INFORMATION
  Report Type: 
  Country: None (occurrence: None)
  Receive Date: 20120523
  Receipt Date: 20120423
  Transmission Date: 20120825
  Serious: Yes (Hospitalization)
  Sender: FDA-Public Use
  Company Number: PHHO2012US003603

PATIENT
  Sex: Female
  Weight: 73 kg

DRUGS (2)
  1. IMATINIB MESYLATE [Suspect]
     Dosage: UNK
     Dates: start: 20120217
  2. IMATINIB MESYLATE [Suspect]
     Indication: GASTROINTESTINAL STROMAL TUMOUR
     Dosage: 600 MG, QD
     Route: 048
     Dates: start: 20110601, end: 20120211

REACTIONS (3)
  - MITRAL VALVE STENOSIS [None]
  - PYREXIA [None]
  - ANGINA PECTORIS [None]
